FAERS Safety Report 4470802-4 (Version None)
Quarter: 2004Q4

REPORT INFORMATION
  Report Type: 
  Country: None (occurrence: None)
  Receive Date: 20041006
  Receipt Date: 20040929
  Transmission Date: 20050328
  Serious: Yes (Hospitalization)
  Sender: FDA-Public Use
  Company Number: 2004-120729-NL

PATIENT
  Age: 33 Year
  Sex: Female

DRUGS (4)
  1. VECURONIUM [Suspect]
     Indication: ANAESTHESIA
     Dosage: INTRAVENOUS NOS
     Route: 042
  2. ATRACURIUM BESYLATE [Suspect]
     Dosage: INTRAVENOUS NOS
     Route: 042
  3. DESFLURANE [Concomitant]
  4. THIOPENTAL SODIUM [Concomitant]

REACTIONS (4)
  - ENDOTRACHEAL INTUBATION COMPLICATION [None]
  - PCO2 INCREASED [None]
  - PO2 ABNORMAL [None]
  - TRISMUS [None]
